FAERS Safety Report 5685079-1 (Version None)
Quarter: 2008Q1

REPORT INFORMATION
  Report Type: 
  Country: None (occurrence: None)
  Receive Date: 20080328
  Receipt Date: 20080326
  Transmission Date: 20080703
  Serious: Yes (Other)
  Sender: FDA-Public Use
  Company Number: FR-ABBOTT-08P-056-0444179-00

PATIENT
  Age: 33 Year
  Sex: Female
  Weight: 112 kg

DRUGS (1)
  1. SIBUTRAL [Suspect]
     Indication: WEIGHT CONTROL
     Dates: start: 20080109, end: 20080119

REACTIONS (2)
  - ABORTION SPONTANEOUS [None]
  - DRUG EXPOSURE DURING PREGNANCY [None]
